FAERS Safety Report 8102137-2 (Version None)
Quarter: 2012Q1

REPORT INFORMATION
  Report Type: 
  Country: None (occurrence: None)
  Receive Date: 20120201
  Receipt Date: 20120123
  Transmission Date: 20120608
  Serious: Yes (Hospitalization)
  Sender: FDA-Public Use
  Company Number: US-AMGEN-USASP2012004928

PATIENT
  Age: 52 Year
  Sex: Female

DRUGS (3)
  1. RITUXAN [Concomitant]
     Dosage: UNK
  2. REMICADE [Concomitant]
     Dosage: UNK
  3. ENBREL [Suspect]
     Indication: RHEUMATOID ARTHRITIS
     Dosage: 25 MG, 2 TIMES/WK
     Dates: start: 19980101

REACTIONS (7)
  - VARICOSE VEIN [None]
  - ERYTHEMA [None]
  - NODULE [None]
  - INJECTION SITE HAEMORRHAGE [None]
  - JOINT SWELLING [None]
  - RHEUMATOID ARTHRITIS [None]
  - ACUTE FEBRILE NEUTROPHILIC DERMATOSIS [None]
